FAERS Safety Report 12145138 (Version 2)
Quarter: 2016Q4

REPORT INFORMATION
  Report Type: Report from Study
  Country: FR (occurrence: FR)
  Receive Date: 20160304
  Receipt Date: 20161005
  Transmission Date: 20170207
  Serious: Yes (Hospitalization)
  Sender: FDA-Public Use
  Company Number: PHHO2012FR019680

PATIENT
  Age: 72 Year
  Sex: Female
  Weight: 49 kg

DRUGS (8)
  1. DABRAFENIB [Suspect]
     Active Substance: DABRAFENIB
     Dosage: 75 MG, QD
     Route: 048
     Dates: start: 20121028, end: 20121028
  2. PRIMPERAN [Concomitant]
     Active Substance: METOCLOPRAMIDE HYDROCHLORIDE
     Indication: VOMITING
     Dosage: 1 DF (AMPOULE), UNK (CONTINUOUS INFUSION)
     Route: 042
     Dates: start: 20121206, end: 20121206
  3. DABRAFENIB [Suspect]
     Active Substance: DABRAFENIB
     Dosage: 100 MG, QD
     Route: 048
     Dates: start: 20121029, end: 20121029
  4. MOTILIUM [Concomitant]
     Active Substance: DOMPERIDONE
     Indication: VOMITING
     Dosage: 10 MG, Q8H
     Route: 048
     Dates: start: 20121027, end: 20121208
  5. DABRAFENIB [Suspect]
     Active Substance: DABRAFENIB
     Indication: NON-SMALL CELL LUNG CANCER
     Dosage: 150 MG, BID
     Route: 048
     Dates: start: 20121025, end: 20121026
  6. DABRAFENIB [Suspect]
     Active Substance: DABRAFENIB
     Dosage: 75 MG, QD
     Route: 048
     Dates: start: 20121029, end: 20121029
  7. DABRAFENIB [Suspect]
     Active Substance: DABRAFENIB
     Dosage: 150 MG, QD
     Route: 048
     Dates: start: 20121027, end: 20121027
  8. DABRAFENIB [Suspect]
     Active Substance: DABRAFENIB
     Dosage: 100 MG, BID
     Route: 048
     Dates: start: 20121030

REACTIONS (1)
  - Inflammation [Recovered/Resolved]

NARRATIVE: CASE EVENT DATE: 20121129
